FAERS Safety Report 9458652 (Version 3)
Quarter: 2015Q4

REPORT INFORMATION
  Report Type: Spontaneous
  Country: PT (occurrence: PT)
  Receive Date: 20130814
  Receipt Date: 20151103
  Transmission Date: 20160305
  Serious: Yes (Other)
  Sender: FDA-Public Use
  Company Number: PT-JNJFOC-20130803779

PATIENT

DRUGS (3)
  1. INFLIXIMAB, RECOMBINANT [Suspect]
     Active Substance: INFLIXIMAB
     Indication: RHEUMATOID ARTHRITIS
     Route: 042
  2. INFLIXIMAB, RECOMBINANT [Suspect]
     Active Substance: INFLIXIMAB
     Indication: ANKYLOSING SPONDYLITIS
     Route: 042
  3. INFLIXIMAB, RECOMBINANT [Suspect]
     Active Substance: INFLIXIMAB
     Indication: CROHN^S DISEASE
     Route: 042

REACTIONS (31)
  - Infestation [Unknown]
  - Respiratory disorder [Unknown]
  - Nervous system disorder [Unknown]
  - Connective tissue disorder [Unknown]
  - Lymphatic disorder [Unknown]
  - Procedural complication [Unknown]
  - Mediastinal disorder [Unknown]
  - Inner ear disorder [Unknown]
  - Ear disorder [Unknown]
  - Angiopathy [Unknown]
  - Eye disorder [Unknown]
  - Lung disorder [Unknown]
  - Skin disorder [Unknown]
  - Renal disorder [Unknown]
  - Infection [Unknown]
  - Musculoskeletal disorder [Unknown]
  - Blood disorder [Unknown]
  - Cardiac disorder [Unknown]
  - Injury [Unknown]
  - Metabolic disorder [Unknown]
  - Neoplasm malignant [Unknown]
  - Surgery [Unknown]
  - Gastrointestinal disorder [Unknown]
  - Urinary tract disorder [Unknown]
  - Mental disorder [Unknown]
  - General physical condition abnormal [Unknown]
  - Administration site reaction [Unknown]
  - Investigation [Unknown]
  - Immune system disorder [Unknown]
  - Hepatobiliary disease [Unknown]
  - Poisoning [Unknown]
